FAERS Safety Report 4431256-7 (Version None)
Quarter: 2004Q3

REPORT INFORMATION
  Report Type: 
  Country: None (occurrence: None)
  Receive Date: 20040817
  Receipt Date: 20040806
  Transmission Date: 20050211
  Serious: Yes (Hospitalization)
  Sender: FDA-Public Use
  Company Number: 2004227352DE

PATIENT
  Age: 18 Year
  Sex: Male

DRUGS (2)
  1. HEPARIN SODIUM [Suspect]
     Indication: THROMBOSIS PROPHYLAXIS
  2. DALTEPARIN SODIUM (DALTEPARIN SODIUM) SOLUTION, STERILE [Suspect]
     Indication: THROMBOSIS PROPHYLAXIS

REACTIONS (3)
  - HEPARIN-INDUCED THROMBOCYTOPENIA [None]
  - PULMONARY EMBOLISM [None]
  - VENA CAVA THROMBOSIS [None]
